FAERS Safety Report 8962454 (Version 1)
Quarter: 2012Q4

REPORT INFORMATION
  Report Type: 
  Country: JP (occurrence: JP)
  Receive Date: 20121213
  Receipt Date: 20121213
  Transmission Date: 20130627
  Serious: Yes (Hospitalization)
  Sender: FDA-Public Use
  Company Number: JP-ROCHE-1168081

PATIENT
  Age: 61 Year
  Sex: Male

DRUGS (7)
  1. XELODA [Suspect]
     Indication: LARGE INTESTINE CARCINOMA
     Dosage: Dosage is uncertain.
     Route: 048
     Dates: start: 201004, end: 201103
  2. XELODA [Suspect]
     Indication: LARGE INTESTINE CARCINOMA
     Dosage: Dosage is uncertain.
     Route: 048
     Dates: start: 201112
  3. AVASTIN [Suspect]
     Indication: LARGE INTESTINE CARCINOMA
     Route: 041
     Dates: start: 201004, end: 201103
  4. AVASTIN [Suspect]
     Indication: LARGE INTESTINE CARCINOMA
     Route: 041
     Dates: start: 201112, end: 20120619
  5. ELPLAT [Suspect]
     Indication: LARGE INTESTINE CARCINOMA
     Dosage: Dosage is uncertain.
     Route: 041
     Dates: start: 201004
  6. IRINOTECAN HYDROCHLORIDE [Concomitant]
     Indication: LARGE INTESTINE CARCINOMA
     Dosage: Dosage is uncertain.
     Route: 041
     Dates: start: 201205, end: 20120619
  7. TS-1 [Concomitant]
     Indication: LARGE INTESTINE CARCINOMA
     Dosage: Dosage is uncertain.
     Route: 048
     Dates: start: 201205, end: 20120619

REACTIONS (2)
  - Cerebral infarction [Not Recovered/Not Resolved]
  - Neuropathy peripheral [Unknown]
